FAERS Safety Report 13750275 (Version 5)
Quarter: 2018Q3

REPORT INFORMATION
  Report Type: Spontaneous
  Country: CH (occurrence: CH)
  Receive Date: 20170713
  Receipt Date: 20180717
  Transmission Date: 20181010
  Serious: Yes (Other)
  Sender: FDA-Public Use
  Company Number: CH-LPDUSPRD-20170940

PATIENT
  Age: 40 Year
  Sex: Male
  Weight: 70 kg

DRUGS (11)
  1. CYANOCOBALAMIN. [Concomitant]
     Active Substance: CYANOCOBALAMIN
     Dosage: UNKNOWN
     Route: 065
  2. ROACCUTANE [Concomitant]
     Active Substance: ISOTRETINOIN
     Dosage: UNKNOWN
     Route: 065
  3. CALCIUM CARBONATE. [Concomitant]
     Active Substance: CALCIUM CARBONATE
     Dosage: UNKNOWN
     Route: 065
  4. FERINJECT [Suspect]
     Active Substance: FERRIC CARBOXYMALTOSE
     Dosage: 1000 MG, 1 IN 1 M
     Route: 041
     Dates: start: 201107
  5. COLESTYRAMINE [Suspect]
     Active Substance: CHOLESTYRAMINE
     Dosage: UNKNOWN
     Route: 048
  6. SODIUM PHOSPHATE [Concomitant]
     Active Substance: SODIUM PHOSPHATE
     Dosage: 0.333 DOSAGE FORM (1 IN 3 D)
     Route: 065
  7. ERGOCALCIFEROL. [Concomitant]
     Active Substance: ERGOCALCIFEROL
     Dosage: 3000000 IU, 1 IN 3 M
     Route: 065
  8. CALCITRIOL. [Concomitant]
     Active Substance: CALCITRIOL
     Dosage: 0.5 MCG, 1 IN 1 D
     Route: 065
     Dates: end: 20170602
  9. CALCIMAGON D3 [Concomitant]
     Active Substance: CALCIUM\CHOLECALCIFEROL
     Dosage: 1 IN 1 D
     Route: 048
  10. METOJECT [Concomitant]
     Active Substance: METHOTREXATE SODIUM
     Dosage: 25 MG, 1 IN 1 WK
     Route: 065
  11. ENTYVIO [Concomitant]
     Active Substance: VEDOLIZUMAB
     Dosage: 1 IN 6 WK
     Route: 065
     Dates: start: 2015

REACTIONS (7)
  - Sacroiliac fracture [Unknown]
  - Intestinal perforation [Unknown]
  - Vitamin D decreased [Unknown]
  - Rib fracture [Unknown]
  - Foot fracture [Unknown]
  - Diabetic nephropathy [Unknown]
  - Stress fracture [Unknown]

NARRATIVE: CASE EVENT DATE: 2012
